FAERS Safety Report 7459897-3 (Version None)
Quarter: 2011Q2

REPORT INFORMATION
  Report Type: 
  Country: None (occurrence: None)
  Receive Date: 20110504
  Receipt Date: 20110504
  Transmission Date: 20111010
  Serious: No
  Sender: FDA-Public Use
  Company Number: None

PATIENT
  Sex: Female
  Weight: 61.6892 kg

DRUGS (1)
  1. DOXIL [Suspect]
     Indication: OVARIAN CANCER
     Dosage: 66 MG/ML IV DRIP
     Route: 041

REACTIONS (4)
  - VERTIGO [None]
  - INFUSION RELATED REACTION [None]
  - PHOTOPSIA [None]
  - BACK PAIN [None]
